FAERS Safety Report 12592050 (Version 1)
Quarter: 2016Q3

REPORT INFORMATION
  Report Type: Spontaneous
  Country: US (occurrence: None)
  Receive Date: 20160725
  Receipt Date: 20160725
  Transmission Date: 20161109
  Serious: Yes (Other)
  Sender: FDA-Public Use
  Company Number: None

PATIENT
  Age: 13 Year
  Sex: Male
  Weight: 45.36 kg

DRUGS (5)
  1. CONCERTA [Concomitant]
     Active Substance: METHYLPHENIDATE HYDROCHLORIDE
  2. ZOLOFT [Concomitant]
     Active Substance: SERTRALINE HYDROCHLORIDE
  3. METHYLPHENIDATE EXTENDED RELEASE [Suspect]
     Active Substance: METHYLPHENIDATE HYDROCHLORIDE
     Indication: ATTENTION DEFICIT/HYPERACTIVITY DISORDER
     Dosage: IN THE MORNING  TAKEN BY MOUTH
     Route: 048
     Dates: start: 20160711, end: 20160722
  4. LACTAID [Concomitant]
     Active Substance: LACTASE
  5. NORDITROPIN [Concomitant]
     Active Substance: SOMATROPIN

REACTIONS (5)
  - Abnormal behaviour [None]
  - Aggression [None]
  - Fear [None]
  - Social avoidant behaviour [None]
  - Product substitution issue [None]

NARRATIVE: CASE EVENT DATE: 20160722
